FAERS Safety Report 5906561-5 (Version None)
Quarter: 2008Q4

REPORT INFORMATION
  Report Type: 
  Country: None (occurrence: None)
  Receive Date: 20081002
  Receipt Date: 20080912
  Transmission Date: 20090506
  Serious: No
  Sender: FDA-Public Use
  Company Number: US-B.I. PHARMACEUTICALS,INC./RIDGEFIELD-2007-BP-02497BP

PATIENT
  Sex: Male
  Weight: 74 kg

DRUGS (29)
  1. MIRAPEX [Suspect]
     Indication: PARKINSON'S DISEASE
     Dates: start: 20010901, end: 20060101
  2. ALLOPURINOL [Concomitant]
     Indication: GOUT
     Dosage: 300MG
  3. LANOXIN [Concomitant]
     Indication: WOLFF-PARKINSON-WHITE SYNDROME
     Dosage: 250MG
  4. FAMVIR [Concomitant]
     Indication: ORAL HERPES
     Dosage: 125MG
  5. STALEVO 100 [Concomitant]
     Indication: PARKINSON'S DISEASE
     Dosage: 450MG
  6. AMANTADINE [Concomitant]
     Indication: PARKINSON'S DISEASE
     Dosage: 300MG
  7. VERAPAMIL [Concomitant]
  8. VIAGRA [Concomitant]
  9. MYTUSSIN [Concomitant]
  10. TAMIFLU [Concomitant]
  11. RANITIDINE [Concomitant]
  12. CARTIA XT [Concomitant]
  13. HYDROCHLOROTHIAZIDE [Concomitant]
  14. FUROSEMIDE [Concomitant]
  15. AMOXICILLIN [Concomitant]
  16. SINEMET [Concomitant]
  17. OXYCONTIN [Concomitant]
  18. ZITHROMAX [Concomitant]
  19. PENICILLIN VK [Concomitant]
  20. DARVON [Concomitant]
  21. CYCLOBENZAPRINE HCL [Concomitant]
  22. LISINOPRIL [Concomitant]
  23. DEMADEX [Concomitant]
  24. LORAZEPAM [Concomitant]
  25. ZYRTEC [Concomitant]
  26. FIORINAL [Concomitant]
  27. DIGOXIN [Concomitant]
  28. ZYLOPRIM [Concomitant]
  29. LASIX [Concomitant]
     Indication: OEDEMA PERIPHERAL
     Dosage: 20MG

REACTIONS (10)
  - ANXIETY [None]
  - DEPRESSION [None]
  - EMOTIONAL DISTRESS [None]
  - FEAR [None]
  - HYPERPHAGIA [None]
  - INJURY [None]
  - PAIN [None]
  - PATHOLOGICAL GAMBLING [None]
  - SUICIDAL IDEATION [None]
  - WEIGHT INCREASED [None]
